FAERS Safety Report 5294822-5 (Version None)
Quarter: 2007Q2

REPORT INFORMATION
  Report Type: 
  Country: None (occurrence: None)
  Receive Date: 20070412
  Receipt Date: 20070403
  Transmission Date: 20071010
  Serious: No
  Sender: FDA-Public Use
  Company Number: CA-ELI_LILLY_AND_COMPANY-CA200609004844

PATIENT
  Age: 34 Year
  Sex: Female

DRUGS (1)
  1. HUMATROPE [Suspect]
     Indication: GROWTH HORMONE DEFICIENCY
     Dosage: 0.6 MG, DAILY (1/D)
     Route: 058
     Dates: start: 20060101, end: 20070101

REACTIONS (3)
  - DIZZINESS [None]
  - HOT FLUSH [None]
  - INSOMNIA [None]
